FAERS Safety Report 10040064 (Version 2)
Quarter: 2014Q2

REPORT INFORMATION
  Report Type: Spontaneous
  Country: GB (occurrence: GB)
  Receive Date: 20140326
  Receipt Date: 20140516
  Transmission Date: 20141212
  Serious: Yes (Other)
  Sender: FDA-Public Use
  Company Number: GB-GILEAD-2014-0097980

PATIENT
  Age: 71 Year
  Sex: Female

DRUGS (6)
  1. RANOLAZINE [Suspect]
     Indication: PRODUCT USED FOR UNKNOWN INDICATION
     Dosage: 375 MG, BID
     Route: 065
     Dates: start: 20130313, end: 20130316
  2. NICORANDIL [Concomitant]
  3. DILTIAZEM HYDROCHLORIDE [Concomitant]
  4. CANDESARTAN CILEXETIL [Concomitant]
  5. ASPIRIN [Concomitant]
  6. CO-CODAMOL [Concomitant]

REACTIONS (11)
  - Anxiety [Recovered/Resolved]
  - Depression [Recovered/Resolved]
  - Flushing [Recovered/Resolved]
  - Sleep disorder [Recovered/Resolved]
  - Aphagia [Recovered/Resolved]
  - Thirst decreased [Recovered/Resolved]
  - Stress [Recovered/Resolved]
  - Abnormal behaviour [Recovered/Resolved]
  - Feeling abnormal [Recovered/Resolved]
  - Confusional state [Recovered/Resolved]
  - Pruritus [Unknown]
